FAERS Safety Report 4680141-4 (Version None)
Quarter: 2005Q2

REPORT INFORMATION
  Report Type: 
  Country: None (occurrence: None)
  Receive Date: 20050525
  Receipt Date: 20050210
  Transmission Date: 20051028
  Serious: No
  Sender: FDA-Public Use
  Company Number: SU-2005-003115

PATIENT
  Age: 47 Year
  Sex: Male
  Weight: 88.4514 kg

DRUGS (3)
  1. BENICAR [Suspect]
     Indication: HYPERTENSION
     Dosage: 20 MG QD PO
     Route: 048
     Dates: start: 20040801, end: 20040901
  2. XANAX - SLOW RELEASE [Concomitant]
  3. TENORMIN [Concomitant]

REACTIONS (2)
  - BRONCHITIS [None]
  - DIARRHOEA [None]
